FAERS Safety Report 19415335 (Version 1)
Quarter: 2021Q2

REPORT INFORMATION
  Report Type: Spontaneous
  Country: DK (occurrence: DK)
  Receive Date: 20210614
  Receipt Date: 20210614
  Transmission Date: 20210717
  Serious: Yes (Hospitalization, Other)
  Sender: FDA-Public Use
  Company Number: DK-PFIZER INC-2021627545

PATIENT
  Age: 67 Year
  Sex: Female
  Weight: 75 kg

DRUGS (9)
  1. ZOLEDRONIC ACID HOSPIRA [Suspect]
     Active Substance: ZOLEDRONIC ACID
     Dosage: 100 ML
     Route: 042
     Dates: start: 20210128, end: 20210128
  2. ZOLEDRONIC ACID HOSPIRA [Suspect]
     Active Substance: ZOLEDRONIC ACID
     Dosage: 100 ML
     Route: 042
     Dates: start: 20200715, end: 20200715
  3. BISOPROLOL SANDOZ [Suspect]
     Active Substance: BISOPROLOL
     Indication: SUPRAVENTRICULAR TACHYCARDIA
     Dosage: 5 MG, DAILY
     Route: 048
     Dates: start: 20170801, end: 20210401
  4. ADENOSINE. [Suspect]
     Active Substance: ADENOSINE
     Indication: SUPRAVENTRICULAR TACHYCARDIA
     Dosage: 5 MG, SINGLE
     Route: 042
     Dates: start: 20210401
  5. COMIRNATY [Suspect]
     Active Substance: TOZINAMERAN
     Indication: COVID-19 IMMUNISATION
     Dosage: 2ND DOSE, SINGLE DOSE
     Dates: start: 20210325, end: 20210325
  6. AROMASIN [Suspect]
     Active Substance: EXEMESTANE
     Indication: BREAST CANCER
     Dosage: 25 MG, DAILY
     Route: 048
     Dates: start: 20190320
  7. ZOLEDRONIC ACID HOSPIRA [Suspect]
     Active Substance: ZOLEDRONIC ACID
     Indication: BONE DISORDER
     Dosage: 100 ML
     Route: 042
     Dates: start: 20191022, end: 20191022
  8. BISOPROLOL SANDOZ [Suspect]
     Active Substance: BISOPROLOL
     Dosage: 12.5 MG, DAILY
     Dates: start: 20210401
  9. ADENOSINE. [Suspect]
     Active Substance: ADENOSINE
     Dosage: 10 MG, SINGLE
     Route: 042
     Dates: start: 20210401

REACTIONS (3)
  - Condition aggravated [Recovered/Resolved]
  - Atrial fibrillation [Unknown]
  - Supraventricular tachycardia [Recovered/Resolved]

NARRATIVE: CASE EVENT DATE: 20210401
